FAERS Safety Report 9165847 (Version 3)
Quarter: 2013Q3

REPORT INFORMATION
  Report Type: Spontaneous
  Country: US (occurrence: US)
  Receive Date: 20130315
  Receipt Date: 20130716
  Transmission Date: 20140515
  Serious: Yes (Other)
  Sender: FDA-Public Use
  Company Number: US-ROCHE-770949

PATIENT
  Age: 29 Year
  Sex: Male
  Weight: 111.1 kg

DRUGS (1)
  1. ACCUTANE [Suspect]
     Indication: ACNE
     Dosage: 40 MG TWO TIMES A DAY AND 10 MG EVERYDAY.
     Route: 048
     Dates: start: 19980706, end: 19981022

REACTIONS (5)
  - Colitis ulcerative [Unknown]
  - Inflammatory bowel disease [Unknown]
  - Emotional distress [Unknown]
  - Anal fissure [Unknown]
  - Irritable bowel syndrome [Unknown]
